FAERS Safety Report 7944728 (Version 2)
Quarter: 2013Q3

REPORT INFORMATION
  Report Type: Spontaneous
  Country: US (occurrence: US)
  Receive Date: 20110513
  Receipt Date: 20130806
  Transmission Date: 20140515
  Serious: Yes (Hospitalization, Other)
  Sender: FDA-Public Use
  Company Number: US-ASTRAZENECA-2011SE26255

PATIENT
  Age: 26170 Day
  Sex: Male
  Weight: 98.4 kg

DRUGS (4)
  1. NEXIUM [Suspect]
     Indication: HIATUS HERNIA
     Route: 048
     Dates: start: 2012
  2. CRESTOR [Suspect]
     Indication: BLOOD CHOLESTEROL INCREASED
     Route: 048
     Dates: start: 2012, end: 20130727
  3. LISINOPRIL [Suspect]
     Indication: BLOOD PRESSURE ABNORMAL
     Route: 048
     Dates: start: 2012
  4. ASPIRIN [Concomitant]
     Route: 048

REACTIONS (6)
  - Thrombosis [Not Recovered/Not Resolved]
  - Vascular occlusion [Unknown]
  - Agitation [Unknown]
  - Hiatus hernia [Unknown]
  - Hypertension [Unknown]
  - Drug dose omission [Unknown]
